FAERS Safety Report 8585298-0 (Version None)
Quarter: 2012Q3

REPORT INFORMATION
  Report Type: 
  Country: None (occurrence: None)
  Receive Date: 20120810
  Receipt Date: 20120802
  Transmission Date: 20120928
  Serious: Yes (Other)
  Sender: FDA-Public Use
  Company Number: US-CELGENEUS-163-21880-12061154

PATIENT
  Sex: Female

DRUGS (9)
  1. FLUTICASONE PROPIONATE [Concomitant]
     Route: 065
  2. ALLERGY MEDICATION [Concomitant]
     Route: 065
  3. ACYCLOVIR [Concomitant]
     Route: 065
  4. REVLIMID [Suspect]
     Dosage: 20 MILLIGRAM
     Route: 048
     Dates: start: 20120525
  5. STOOL SOFTENER [Concomitant]
     Route: 065
  6. MUCINEX DM [Concomitant]
     Route: 065
  7. PROAIR HFA [Concomitant]
     Route: 065
  8. CALCIUM [Concomitant]
     Route: 065
  9. PROPYLENE GLYCOL [Concomitant]
     Route: 065

REACTIONS (4)
  - PNEUMOTHORAX [None]
  - MUSCLE SPASMS [None]
  - FATIGUE [None]
  - DIARRHOEA [None]
